FAERS Safety Report 6884244-5 (Version None)
Quarter: 2010Q3

REPORT INFORMATION
  Report Type: 
  Country: None (occurrence: None)
  Receive Date: 20100729
  Receipt Date: 20070607
  Transmission Date: 20110219
  Serious: No
  Sender: FDA-Public Use
  Company Number: US-PFIZER INC-2007046629

PATIENT
  Sex: Female
  Weight: 79.38 kg

DRUGS (4)
  1. CELEBREX [Suspect]
     Indication: ARTHRITIS
     Dates: start: 20020101
  2. ACETAMINOPHEN [Concomitant]
     Indication: ARTHRITIS
  3. CYCLOBENZAPRINE [Concomitant]
     Indication: FIBROMYALGIA
  4. BENADRYL [Concomitant]
     Indication: HYPERSENSITIVITY

REACTIONS (3)
  - ARTHRITIS [None]
  - DRUG EFFECT DECREASED [None]
  - PAIN [None]
